FAERS Safety Report 16595803 (Version 2)
Quarter: 2019Q4

REPORT INFORMATION
  Report Type: Spontaneous
  Country: JP (occurrence: JP)
  Receive Date: 20190719
  Receipt Date: 20191022
  Transmission Date: 20200122
  Serious: Yes (Death, Hospitalization, Other)
  Sender: FDA-Public Use
  Company Number: JP-009507513-1907JPN001446J

PATIENT
  Age: 70 Year
  Sex: Male
  Weight: 46 kg

DRUGS (5)
  1. LOXOPROFEN [Concomitant]
     Active Substance: LOXOPROFEN
     Indication: BONE PAIN
     Dosage: 60 MILLIGRAM, TID
     Route: 048
     Dates: start: 20180724, end: 20180907
  2. VONOPRAZAN FUMARATE [Concomitant]
     Active Substance: VONOPRAZAN FUMURATE
     Indication: PROPHYLAXIS AGAINST GASTROINTESTINAL ULCER
     Dosage: 10 MILLIGRAM, QD
     Route: 048
     Dates: start: 20180724, end: 20180907
  3. KEYTRUDA [Suspect]
     Active Substance: PEMBROLIZUMAB
     Indication: NON-SMALL CELL LUNG CANCER
     Dosage: 200 MILLIGRAM, Q3W
     Route: 041
     Dates: start: 20180720, end: 20180831
  4. OXYCODONE HYDROCHLORIDE. [Concomitant]
     Active Substance: OXYCODONE HYDROCHLORIDE
     Indication: BONE PAIN
     Dosage: 10 MILLIGRAM, BID
     Route: 048
     Dates: start: 20180713, end: 20180831
  5. MAGMITT [Concomitant]
     Active Substance: MAGNESIUM OXIDE
     Indication: CONSTIPATION
     Dosage: 50 MILLIGRAM, TID
     Route: 048
     Dates: start: 20180713, end: 20180831

REACTIONS (5)
  - Oedema [Recovered/Resolved]
  - Malignant neoplasm progression [Fatal]
  - Pulmonary thrombosis [Not Recovered/Not Resolved]
  - Interstitial lung disease [Recovering/Resolving]
  - Immune-mediated enterocolitis [Recovered/Resolved]

NARRATIVE: CASE EVENT DATE: 20180902
